FAERS Safety Report 13907037 (Version 1)
Quarter: 2017Q3

REPORT INFORMATION
  Report Type: Spontaneous
  Country: DE (occurrence: DE)
  Receive Date: 20170825
  Receipt Date: 20170825
  Transmission Date: 20171127
  Serious: Yes (Hospitalization)
  Sender: FDA-Public Use
  Company Number: DE-BIOGEN-2017BI00449005

PATIENT
  Sex: Female

DRUGS (1)
  1. ZINBRYTA [Suspect]
     Active Substance: DACLIZUMAB
     Indication: PARAPSORIASIS
     Route: 042
     Dates: start: 201704

REACTIONS (7)
  - Colitis [Unknown]
  - Skin reaction [Unknown]
  - Eye inflammation [Unknown]
  - Incorrect route of drug administration [Recovered/Resolved]
  - Intentional product use issue [Recovered/Resolved]
  - Alopecia [Unknown]
  - Fluid retention [Unknown]

NARRATIVE: CASE EVENT DATE: 2017
